FAERS Safety Report 4376061-5 (Version None)
Quarter: 2004Q2

REPORT INFORMATION
  Report Type: 
  Country: None (occurrence: None)
  Receive Date: 20040611
  Receipt Date: 20010823
  Transmission Date: 20050107
  Serious: Yes (Death)
  Sender: FDA-Public Use
  Company Number: 200115993US

PATIENT
  Sex: Female
  Weight: 74 kg

DRUGS (11)
  1. ALLEGRA-D [Suspect]
     Indication: HYPERSENSITIVITY
     Dosage: DOSE: 60/120
     Route: 048
     Dates: start: 20010818, end: 20010818
  2. FLONASE [Concomitant]
     Dosage: DOSE: NOT PROVIDED
  3. VASOTEC [Concomitant]
     Dosage: DOSE: NOT PROVIDED
  4. SEREVENT [Concomitant]
     Dosage: DOSE: NOT PROVIDED
  5. PULMICORT [Concomitant]
     Dosage: DOSE: NOT PROVIDED
  6. ATENOLOL [Concomitant]
  7. ESTRACE [Concomitant]
     Dosage: DOSE: UNK
  8. ASPIRIN [Concomitant]
     Dosage: DOSE: UNK
  9. MULTIVITAMINS, PLAIN [Concomitant]
     Dosage: DOSE: UNK
  10. LEVAQUIN [Concomitant]
     Dosage: DOSE: UNK
     Dates: start: 20010414
  11. DIFLUCAN [Concomitant]
     Dosage: DOSE: UNK
     Dates: start: 20010421

REACTIONS (19)
  - ALANINE AMINOTRANSFERASE INCREASED [None]
  - ANAPHYLACTIC SHOCK [None]
  - ASPARTATE AMINOTRANSFERASE INCREASED [None]
  - BLOOD ALBUMIN DECREASED [None]
  - BLOOD AMYLASE INCREASED [None]
  - BLOOD GLUCOSE INCREASED [None]
  - CARDIO-RESPIRATORY ARREST [None]
  - CONVULSION [None]
  - DISSEMINATED INTRAVASCULAR COAGULATION [None]
  - HEPATIC ENZYME INCREASED [None]
  - HYPOTENSION [None]
  - INTERNATIONAL NORMALISED RATIO INCREASED [None]
  - LIPASE INCREASED [None]
  - MULTI-ORGAN FAILURE [None]
  - PYREXIA [None]
  - RASH [None]
  - RENAL FAILURE ACUTE [None]
  - RHABDOMYOLYSIS [None]
  - WHITE BLOOD CELL COUNT INCREASED [None]
